FAERS Safety Report 9760194 (Version 1)
Quarter: 2013Q4

REPORT INFORMATION
  Report Type: Spontaneous
  Country: US (occurrence: None)
  Receive Date: 20131212
  Receipt Date: 20131212
  Transmission Date: 20140711
  Serious: Yes (Other)
  Sender: FDA-Public Use
  Company Number: 2013P1021754

PATIENT
  Age: 67 Year
  Sex: Female

DRUGS (4)
  1. CARVEDILOL [Suspect]
     Indication: HYPERTENSION
  2. AMLODIPINE [Concomitant]
  3. ASPIRIN [Concomitant]
  4. LEVOTHYROXINE [Concomitant]

REACTIONS (8)
  - Abdominal pain upper [None]
  - Nausea [None]
  - Fatigue [None]
  - Chromaturia [None]
  - Ocular icterus [None]
  - Cholelithiasis [None]
  - Liver injury [None]
  - Drug-induced liver injury [None]
